FAERS Safety Report 7801943-9 (Version None)
Quarter: 2011Q4

REPORT INFORMATION
  Report Type: 
  Country: None (occurrence: None)
  Receive Date: 20111007
  Receipt Date: 20111007
  Transmission Date: 20120403
  Serious: Yes (Other)
  Sender: FDA-Public Use
  Company Number: None

PATIENT
  Age: 85 Year
  Sex: Male
  Weight: 79.7 kg

DRUGS (2)
  1. PROMETHAZINE [Suspect]
     Indication: VOMITING
     Dosage: 12.5 MG
     Route: 042
     Dates: start: 20111001, end: 20111005
  2. PROMETHAZINE [Suspect]
     Indication: NAUSEA
     Dosage: 12.5 MG
     Route: 042
     Dates: start: 20111001, end: 20111005

REACTIONS (3)
  - ABNORMAL BEHAVIOUR [None]
  - HALLUCINATION [None]
  - DYSARTHRIA [None]
